FAERS Safety Report 8473458-9 (Version None)
Quarter: 2012Q2

REPORT INFORMATION
  Report Type: 
  Country: None (occurrence: None)
  Receive Date: 20120625
  Receipt Date: 20120625
  Transmission Date: 20120825
  Serious: No
  Sender: FDA-Public Use
  Company Number: None

PATIENT

DRUGS (2)
  1. COLCRYS [Suspect]
     Indication: GOUT
     Dosage: 0.6MG BID PO
     Route: 048
  2. CLONIDINE [Suspect]
     Indication: HYPERTENSION
     Dosage: 0.6MG BID PO
     Route: 048

REACTIONS (1)
  - INTERCEPTED DRUG DISPENSING ERROR [None]
